FAERS Safety Report 26021594 (Version 1)
Quarter: 2025Q4

REPORT INFORMATION
  Report Type: Spontaneous
  Country: EU (occurrence: EU)
  Receive Date: 20251110
  Receipt Date: 20251110
  Transmission Date: 20260118
  Serious: Yes (Hospitalization)
  Sender: MYLAN
  Company Number: None

PATIENT
  Age: 55 Year
  Sex: Female
  Weight: 71 kg

DRUGS (20)
  1. CLOZAPINE [Suspect]
     Active Substance: CLOZAPINE
     Indication: Schizophrenia
     Dosage: 200 MILLIGRAM, QD
     Dates: start: 20250805, end: 20251005
  2. CLOZAPINE [Suspect]
     Active Substance: CLOZAPINE
     Dosage: 200 MILLIGRAM, QD
     Route: 048
     Dates: start: 20250805, end: 20251005
  3. CLOZAPINE [Suspect]
     Active Substance: CLOZAPINE
     Dosage: 200 MILLIGRAM, QD
     Route: 048
     Dates: start: 20250805, end: 20251005
  4. CLOZAPINE [Suspect]
     Active Substance: CLOZAPINE
     Dosage: 200 MILLIGRAM, QD
     Dates: start: 20250805, end: 20251005
  5. VALPROATE SODIUM [Concomitant]
     Active Substance: VALPROATE SODIUM
     Indication: Epilepsy
     Dosage: 1 GRAM, BID (12 HOURS)
  6. VALPROATE SODIUM [Concomitant]
     Active Substance: VALPROATE SODIUM
     Dosage: 1 GRAM, BID (12 HOURS)
     Route: 048
  7. VALPROATE SODIUM [Concomitant]
     Active Substance: VALPROATE SODIUM
     Dosage: 1 GRAM, BID (12 HOURS)
     Route: 048
  8. VALPROATE SODIUM [Concomitant]
     Active Substance: VALPROATE SODIUM
     Dosage: 1 GRAM, BID (12 HOURS)
  9. TERALITHE [Concomitant]
     Active Substance: LITHIUM CARBONATE
     Indication: Schizophrenia
     Dosage: 625 MILLIGRAM, QD (24 HOURS, SCORED TABLET)
     Dates: start: 20250917
  10. TERALITHE [Concomitant]
     Active Substance: LITHIUM CARBONATE
     Dosage: 625 MILLIGRAM, QD (24 HOURS, SCORED TABLET)
     Route: 048
     Dates: start: 20250917
  11. TERALITHE [Concomitant]
     Active Substance: LITHIUM CARBONATE
     Dosage: 625 MILLIGRAM, QD (24 HOURS, SCORED TABLET)
     Route: 048
     Dates: start: 20250917
  12. TERALITHE [Concomitant]
     Active Substance: LITHIUM CARBONATE
     Dosage: 625 MILLIGRAM, QD (24 HOURS, SCORED TABLET)
     Dates: start: 20250917
  13. PREGABALIN [Concomitant]
     Active Substance: PREGABALIN
     Indication: Product used for unknown indication
     Dosage: 100 MILLIGRAM, BID (12 HOURS)
     Dates: start: 20250917
  14. PREGABALIN [Concomitant]
     Active Substance: PREGABALIN
     Dosage: 100 MILLIGRAM, BID (12 HOURS)
     Route: 048
     Dates: start: 20250917
  15. PREGABALIN [Concomitant]
     Active Substance: PREGABALIN
     Dosage: 100 MILLIGRAM, BID (12 HOURS)
     Route: 048
     Dates: start: 20250917
  16. PREGABALIN [Concomitant]
     Active Substance: PREGABALIN
     Dosage: 100 MILLIGRAM, BID (12 HOURS)
     Dates: start: 20250917
  17. PALIPERIDONE PALMITATE [Concomitant]
     Active Substance: PALIPERIDONE PALMITATE
     Indication: Schizophrenia
     Dosage: 525 MILLIGRAM, Q3MONTHS
  18. PALIPERIDONE PALMITATE [Concomitant]
     Active Substance: PALIPERIDONE PALMITATE
     Dosage: 525 MILLIGRAM, Q3MONTHS
     Route: 030
  19. PALIPERIDONE PALMITATE [Concomitant]
     Active Substance: PALIPERIDONE PALMITATE
     Dosage: 525 MILLIGRAM, Q3MONTHS
     Route: 030
  20. PALIPERIDONE PALMITATE [Concomitant]
     Active Substance: PALIPERIDONE PALMITATE
     Dosage: 525 MILLIGRAM, Q3MONTHS

REACTIONS (1)
  - Encephalopathy [Recovered/Resolved]

NARRATIVE: CASE EVENT DATE: 20250930
